FAERS Safety Report 6699563-5 (Version None)
Quarter: 2010Q2

REPORT INFORMATION
  Report Type: 
  Country: None (occurrence: None)
  Receive Date: 20100427
  Receipt Date: 20100427
  Transmission Date: 20101027
  Serious: Yes (Life-Threatening, Other)
  Sender: FDA-Public Use
  Company Number: None

PATIENT
  Age: 26 Year
  Sex: Female
  Weight: 72.5755 kg

DRUGS (1)
  1. MIRENA [Suspect]
     Indication: CONTRACEPTION
     Dosage: ONCE 5 YEARS VAG
     Route: 067
     Dates: start: 20090524, end: 20100422

REACTIONS (8)
  - ABDOMINAL DISTENSION [None]
  - ANXIETY [None]
  - BLOOD URINE PRESENT [None]
  - CONSTIPATION [None]
  - DEPRESSION [None]
  - HAEMORRHAGE [None]
  - SUICIDAL IDEATION [None]
  - WEIGHT INCREASED [None]
